FAERS Safety Report 21299566 (Version 1)
Quarter: 2022Q3

REPORT INFORMATION
  Report Type: Spontaneous
  Country: US (occurrence: US)
  Receive Date: 20220906
  Receipt Date: 20220906
  Transmission Date: 20221026
  Serious: Yes (Hospitalization)
  Sender: FDA-Public Use
  Company Number: US-BRISTOL-MYERS SQUIBB COMPANY-2022-101298

PATIENT
  Age: 71 Year
  Sex: Female
  Weight: 86.64 kg

DRUGS (1)
  1. REVLIMID [Suspect]
     Active Substance: LENALIDOMIDE
     Indication: Plasma cell myeloma
     Dosage: FREQUENCY: DAILY 14 DAYS ON AND 7 DAYS OFF.
     Route: 048
     Dates: start: 20180223

REACTIONS (5)
  - Product dose omission issue [Unknown]
  - Blood potassium decreased [Recovering/Resolving]
  - Flatulence [Recovering/Resolving]
  - Neuralgia [Recovering/Resolving]
  - Off label use [Unknown]
